FAERS Safety Report 8559831-9 (Version None)
Quarter: 2012Q3

REPORT INFORMATION
  Report Type: 
  Country: None (occurrence: None)
  Receive Date: 20120802
  Receipt Date: 20120730
  Transmission Date: 20120928
  Serious: No
  Sender: FDA-Public Use
  Company Number: US-PFIZER INC-2012144198

PATIENT
  Sex: Female

DRUGS (3)
  1. MORPHINE SUL HYT [Suspect]
     Indication: PAIN
     Dosage: UNK
     Route: 042
     Dates: start: 20060101
  2. MORPHINE SUL HYT [Suspect]
     Dosage: UNK
     Route: 048
     Dates: start: 20101116, end: 20110610
  3. CODEINE PHOSPHATE AND ACETAMINOPHEN [Suspect]
     Dosage: 300-30 MG

REACTIONS (4)
  - NAUSEA [None]
  - DIARRHOEA [None]
  - DRUG HYPERSENSITIVITY [None]
  - VOMITING [None]
